FAERS Safety Report 14762697 (Version 1)
Quarter: 2018Q2

REPORT INFORMATION
  Report Type: Spontaneous
  Country: US (occurrence: US)
  Receive Date: 20180416
  Receipt Date: 20180416
  Transmission Date: 20180711
  Serious: No
  Sender: FDA-Public Use
  Company Number: US-PFIZER INC-2018149895

PATIENT
  Sex: Male

DRUGS (3)
  1. CENTRUM [Suspect]
     Active Substance: VITAMINS
     Dosage: UNK
     Dates: start: 20180410
  2. IBUPROFEN. [Suspect]
     Active Substance: IBUPROFEN
     Dosage: UNK
     Dates: start: 20180410
  3. ASPIRIN. [Suspect]
     Active Substance: ASPIRIN
     Dosage: UNK
     Dates: start: 20180410

REACTIONS (4)
  - Poor quality drug administered [Unknown]
  - Product commingling [Unknown]
  - Feeling abnormal [Unknown]
  - Paranoia [Unknown]

NARRATIVE: CASE EVENT DATE: 20180410
